FAERS Safety Report 23296671 (Version 1)
Quarter: 2023Q4

REPORT INFORMATION
  Report Type: Spontaneous
  Country: PL (occurrence: PL)
  Receive Date: 20231214
  Receipt Date: 20231214
  Transmission Date: 20240110
  Serious: Yes (Other)
  Sender: FDA-Public Use
  Company Number: PL-NOVITIUMPHARMA-2023PLNVP02175

PATIENT
  Age: 11 Year
  Sex: Male

DRUGS (6)
  1. PREDNISONE [Suspect]
     Active Substance: PREDNISONE
     Indication: Acute lymphocytic leukaemia
     Route: 042
  2. DAUNORUBICIN [Concomitant]
     Active Substance: DAUNORUBICIN
     Indication: Acute lymphocytic leukaemia
  3. VINCRISTINE [Concomitant]
     Active Substance: VINCRISTINE
     Indication: Acute lymphocytic leukaemia
     Route: 042
  4. METHOTREXATE [Concomitant]
     Active Substance: METHOTREXATE
     Indication: Acute lymphocytic leukaemia
     Route: 037
  5. CYCLOPHOSPHAMIDE [Concomitant]
     Active Substance: CYCLOPHOSPHAMIDE
     Indication: Acute lymphocytic leukaemia
  6. PEGASPARGASE [Concomitant]
     Active Substance: PEGASPARGASE
     Indication: Acute lymphocytic leukaemia
     Dosage: 2500 UI/M2

REACTIONS (8)
  - Cholecystitis [Recovering/Resolving]
  - Hepatitis [Recovering/Resolving]
  - Myelosuppression [Recovering/Resolving]
  - Febrile bone marrow aplasia [Recovering/Resolving]
  - Oesophageal haemorrhage [Recovering/Resolving]
  - Pneumonia fungal [Recovering/Resolving]
  - Hypokalaemia [Recovering/Resolving]
  - Pancreatitis [Recovering/Resolving]
